FAERS Safety Report 19013533 (Version 1)
Quarter: 2021Q1

REPORT INFORMATION
  Report Type: Spontaneous
  Country: ES (occurrence: ES)
  Receive Date: 20210316
  Receipt Date: 20210316
  Transmission Date: 20210420
  Serious: Yes (Other)
  Sender: FDA-Public Use
  Company Number: ES-OTSUKA-2021_007126

PATIENT
  Age: 44 Year
  Sex: Male

DRUGS (13)
  1. ABILIFY [Suspect]
     Active Substance: ARIPIPRAZOLE
     Indication: PARANOID PERSONALITY DISORDER
     Dosage: 10 MG, QD (0?1?0)
     Route: 065
  2. DEXKETOPROFEN [Concomitant]
     Active Substance: DEXKETOPROFEN
     Indication: PRODUCT USED FOR UNKNOWN INDICATION
     Dosage: 25 MG
     Route: 065
  3. ABILIFY [Suspect]
     Active Substance: ARIPIPRAZOLE
     Indication: DEPRESSION
     Dosage: 15 MG, QD (0?1?0)
     Route: 065
  4. ABILIFY [Suspect]
     Active Substance: ARIPIPRAZOLE
     Dosage: 10 MG, QD (0?1?0)
     Route: 065
  5. LORAZEPAM. [Suspect]
     Active Substance: LORAZEPAM
     Indication: PRODUCT USED FOR UNKNOWN INDICATION
     Dosage: 1 MG, TID (8H QD)
     Route: 065
  6. AKINETON [Suspect]
     Active Substance: BIPERIDEN HYDROCHLORIDE
     Indication: PRODUCT USED FOR UNKNOWN INDICATION
     Dosage: MG. ONE TABLET IN THE MORNINGS.(1?0?0)
     Route: 065
  7. ABILIFY [Suspect]
     Active Substance: ARIPIPRAZOLE
     Dosage: 10 MG, QD (0?1?0)
     Route: 065
  8. LORAZEPAM. [Suspect]
     Active Substance: LORAZEPAM
     Dosage: 1 MG, TID 8H QD
     Route: 065
  9. METAMIZOLE [Concomitant]
     Active Substance: METAMIZOLE
     Indication: PRODUCT USED FOR UNKNOWN INDICATION
     Dosage: 575 MG
     Route: 065
  10. ABILIFY [Suspect]
     Active Substance: ARIPIPRAZOLE
     Dosage: 15 MG, QD (0?1?0)
     Route: 065
  11. LORAZEPAM. [Suspect]
     Active Substance: LORAZEPAM
     Dosage: 2 MG, QD  (8H QD)
     Route: 065
  12. RIVOTRIL [Suspect]
     Active Substance: CLONAZEPAM
     Indication: PRODUCT USED FOR UNKNOWN INDICATION
     Dosage: 0.5 MG, TID EVERY 8 HOURS (1?1?1)
     Route: 065
  13. ABILIFY [Suspect]
     Active Substance: ARIPIPRAZOLE
     Indication: ANXIETY
     Dosage: 10 MG, QD (0?1?0)
     Route: 065

REACTIONS (25)
  - Depressed level of consciousness [Recovering/Resolving]
  - Pyramidal tract syndrome [Unknown]
  - Suicidal ideation [Unknown]
  - Depressed mood [Unknown]
  - Dysphoria [Unknown]
  - Agitation [Unknown]
  - Paranoid personality disorder [Unknown]
  - Amnesia [Unknown]
  - Neck pain [Unknown]
  - Insomnia [Unknown]
  - Mental disability [Unknown]
  - Aggression [Unknown]
  - Intentional overdose [Unknown]
  - Drug ineffective [Unknown]
  - Product use in unapproved indication [Unknown]
  - Dependence [Recovering/Resolving]
  - Persecutory delusion [Unknown]
  - Irritability [Unknown]
  - Depression [Unknown]
  - Salivary hypersecretion [Unknown]
  - Discomfort [Unknown]
  - Hallucination [Unknown]
  - Compulsive sexual behaviour [Unknown]
  - Impulse-control disorder [Recovering/Resolving]
  - Anxiety [Unknown]

NARRATIVE: CASE EVENT DATE: 20130302
